FAERS Safety Report 6980195-6 (Version None)
Quarter: 2010Q3

REPORT INFORMATION
  Report Type: 
  Country: None (occurrence: None)
  Receive Date: 20100914
  Receipt Date: 20100831
  Transmission Date: 20110219
  Serious: Yes (Hospitalization)
  Sender: FDA-Public Use
  Company Number: IL-RANBAXY-2010RR-35271

PATIENT
  Age: 15 Year
  Sex: Female

DRUGS (3)
  1. METAMIZOLE [Suspect]
     Dosage: 7 G, UNK
     Route: 048
  2. ACETAMINOPHEN [Suspect]
     Dosage: 500 MG, UNK
  3. CARBOCISTEINE [Suspect]
     Dosage: 2.1 G, UNK

REACTIONS (2)
  - OVERDOSE [None]
  - RENAL IMPAIRMENT [None]
